FAERS Safety Report 15809752 (Version 1)
Quarter: 2019Q1

REPORT INFORMATION
  Report Type: Spontaneous
  Country: US (occurrence: US)
  Receive Date: 20190111
  Receipt Date: 20190111
  Transmission Date: 20190417
  Serious: No
  Sender: FDA-Public Use
  Company Number: US-ROCHE-2066239

PATIENT
  Age: 65 Year
  Sex: Female
  Weight: 70.37 kg

DRUGS (4)
  1. DIFLUCAN [Concomitant]
     Active Substance: FLUCONAZOLE
     Indication: INFECTION
  2. CREAM (UNK INGREDIENTS) [Concomitant]
     Indication: INFECTION
  3. RITUXAN [Suspect]
     Active Substance: RITUXIMAB
     Indication: CHRONIC LYMPHOCYTIC LEUKAEMIA
     Dosage: ONGOING:NO
     Route: 042
     Dates: start: 201507, end: 20170519
  4. VALIUM [Concomitant]
     Active Substance: DIAZEPAM
     Indication: MUSCLE STRAIN

REACTIONS (7)
  - Vaginal discharge [Unknown]
  - Urinary tract infection [Recovered/Resolved]
  - Fungal infection [Recovered/Resolved]
  - Infection [Unknown]
  - Vulvovaginal erythema [Unknown]
  - Muscle strain [Unknown]
  - Vaginal disorder [Unknown]

NARRATIVE: CASE EVENT DATE: 201710
